FAERS Safety Report 4523343-X (Version None)
Quarter: 2004Q4

REPORT INFORMATION
  Report Type: 
  Country: None (occurrence: None)
  Receive Date: 20041209
  Receipt Date: 20041209
  Transmission Date: 20050328
  Serious: Yes (Other)
  Sender: FDA-Public Use
  Company Number: None

PATIENT
  Age: 63 Year
  Sex: Female

DRUGS (1)
  1. CYMBALTA [Suspect]
     Indication: DEPRESSION
     Dosage: 30MG   ONE TIME  ORAL
     Route: 048
     Dates: start: 20041111, end: 20041111

REACTIONS (3)
  - DIZZINESS [None]
  - DYSSTASIA [None]
  - FEAR [None]
